FAERS Safety Report 13558137 (Version 1)
Quarter: 2017Q2

REPORT INFORMATION
  Report Type: Spontaneous
  Country: IT (occurrence: IT)
  Receive Date: 20170518
  Receipt Date: 20170518
  Transmission Date: 20170830
  Serious: Yes (Hospitalization, Other)
  Sender: FDA-Public Use
  Company Number: IT-GLAXOSMITHKLINE-IT2017GSK072247

PATIENT
  Age: 67 Year
  Sex: Female

DRUGS (2)
  1. VOLTAREN [Suspect]
     Active Substance: DICLOFENAC SODIUM
     Indication: PAIN
     Dosage: 150 MG, QD
     Route: 065
     Dates: start: 20160604, end: 20160704
  2. CLEXANE [Suspect]
     Active Substance: ENOXAPARIN SODIUM
     Indication: ANTICOAGULANT THERAPY
     Dosage: 4000 IU, QD
     Route: 058
     Dates: start: 20160604, end: 20160704

REACTIONS (3)
  - Melaena [Unknown]
  - Anaemia [Unknown]
  - Presyncope [Unknown]

NARRATIVE: CASE EVENT DATE: 20160704
